FAERS Safety Report 5940765-0 (Version None)
Quarter: 2008Q4

REPORT INFORMATION
  Report Type: 
  Country: None (occurrence: None)
  Receive Date: 20081103
  Receipt Date: 20081103
  Transmission Date: 20090506
  Serious: Yes (Hospitalization)
  Sender: FDA-Public Use
  Company Number: None

PATIENT
  Age: 22 Year

DRUGS (1)
  1. BUPROPION HCL [Suspect]
     Indication: SCHIZOPHRENIA, PARANOID TYPE
     Dosage: 150 MG EVERY DAY PO
     Route: 048
     Dates: start: 20081028, end: 20081029

REACTIONS (3)
  - CONDITION AGGRAVATED [None]
  - HALLUCINATION, AUDITORY [None]
  - MANIA [None]
